FAERS Safety Report 12960320 (Version 1)
Quarter: 2016Q4

REPORT INFORMATION
  Report Type: Spontaneous
  Country: US (occurrence: US)
  Receive Date: 20161120
  Receipt Date: 20161120
  Transmission Date: 20170207
  Serious: No
  Sender: FDA-Public Use
  Company Number: None

PATIENT
  Age: 51 Year
  Sex: Female
  Weight: 67.5 kg

DRUGS (1)
  1. TRIAMCINOLONE [Suspect]
     Active Substance: TRIAMCINOLONE
     Indication: TENDONITIS
     Dosage: ?          OTHER FREQUENCY:ONCE INJECTION;?
     Route: 030
     Dates: start: 20160802, end: 20160802

REACTIONS (11)
  - Myalgia [None]
  - Paraesthesia [None]
  - Tendon pain [None]
  - Muscle spasms [None]
  - Insomnia [None]
  - Tremor [None]
  - Chills [None]
  - Anxiety [None]
  - Hypoaesthesia [None]
  - Palpitations [None]
  - Bone pain [None]

NARRATIVE: CASE EVENT DATE: 20160802
